FAERS Safety Report 5845245-9 (Version None)
Quarter: 2008Q3

REPORT INFORMATION
  Report Type: 
  Country: None (occurrence: None)
  Receive Date: 20080814
  Receipt Date: 20080811
  Transmission Date: 20090109
  Serious: Yes (Other)
  Sender: FDA-Public Use
  Company Number: B0532646A

PATIENT
  Age: 77 Year
  Sex: Female

DRUGS (6)
  1. PAXIL [Suspect]
     Indication: DEPRESSION
     Dosage: 30MG PER DAY
     Route: 048
     Dates: start: 20070801, end: 20080701
  2. PAXIL [Suspect]
     Route: 048
     Dates: start: 20080701
  3. VASOLAN [Concomitant]
     Route: 065
  4. BLOPRESS [Concomitant]
     Route: 048
  5. DIGOXIN [Concomitant]
     Route: 065
  6. WARFARIN SODIUM [Concomitant]
     Route: 048

REACTIONS (1)
  - PARKINSONISM [None]
